FAERS Safety Report 13863619 (Version 2)
Quarter: 2017Q4

REPORT INFORMATION
  Report Type: Spontaneous
  Country: US (occurrence: US)
  Receive Date: 20170814
  Receipt Date: 20171211
  Transmission Date: 20180320
  Serious: No
  Sender: FDA-Public Use
  Company Number: US-LUNDBECK-DKLU2030817

PATIENT
  Age: 80 Year
  Sex: Male

DRUGS (1)
  1. NORTHERA [Suspect]
     Active Substance: DROXIDOPA
     Indication: ORTHOSTATIC HYPOTENSION
     Dosage: SCHEDULE B AND TITRATING
     Route: 048
     Dates: start: 20170506

REACTIONS (5)
  - Confusional state [Unknown]
  - Balance disorder [Unknown]
  - Gait disturbance [Unknown]
  - Anger [Unknown]
  - Mood altered [Unknown]

NARRATIVE: CASE EVENT DATE: 20170508
